FAERS Safety Report 9456425 (Version 1)
Quarter: 2013Q3

REPORT INFORMATION
  Report Type: Spontaneous
  Country: US (occurrence: US)
  Receive Date: 20130813
  Receipt Date: 20130813
  Transmission Date: 20140515
  Serious: Yes (Other)
  Sender: FDA-Public Use
  Company Number: US-TEVA-424648USA

PATIENT
  Age: 34 Year
  Sex: Female
  Weight: 74.91 kg

DRUGS (2)
  1. PARAGARD 380A [Suspect]
     Indication: CONTRACEPTION
     Route: 015
     Dates: start: 20030714
  2. ORTHO CYCLEN [Concomitant]
     Indication: CONTRACEPTION

REACTIONS (4)
  - Medical device complication [Not Recovered/Not Resolved]
  - Abdominal pain [Unknown]
  - Pain [Unknown]
  - Uterine cervix stenosis [Unknown]
